FAERS Safety Report 6076166-7 (Version None)
Quarter: 2009Q1

REPORT INFORMATION
  Report Type: 
  Country: None (occurrence: None)
  Receive Date: 20090212
  Receipt Date: 20090207
  Transmission Date: 20090719
  Serious: No
  Sender: FDA-Public Use
  Company Number: US-B.I. PHARMACEUTICALS,INC./RIDGEFIELD-2009-BP-01632BP

PATIENT
  Sex: Male

DRUGS (2)
  1. ZANTAC 150 [Suspect]
     Indication: GASTRITIS
     Dosage: 300MG
     Route: 048
     Dates: start: 20090131, end: 20090201
  2. ZANTAC 150 [Suspect]
     Dosage: 150MG
     Route: 048
     Dates: start: 20090201, end: 20090202

REACTIONS (1)
  - PAIN [None]
